FAERS Safety Report 20506239 (Version 1)
Quarter: 2022Q1

REPORT INFORMATION
  Report Type: Spontaneous
  Country: JO (occurrence: JO)
  Receive Date: 20220223
  Receipt Date: 20220223
  Transmission Date: 20220423
  Serious: Yes (Hospitalization, Other)
  Sender: FDA-Public Use
  Company Number: JO-PFIZER INC-202200248202

PATIENT
  Age: 56 Year
  Sex: Male

DRUGS (1)
  1. METHYLPREDNISOLONE [Suspect]
     Active Substance: METHYLPREDNISOLONE
     Indication: Facial paralysis
     Dosage: UNK

REACTIONS (4)
  - Mucormycosis [Recovered/Resolved with Sequelae]
  - Diabetes mellitus [Unknown]
  - Off label use [Unknown]
  - Drug ineffective for unapproved indication [Unknown]
